FAERS Safety Report 9813908 (Version 3)
Quarter: 2014Q1

REPORT INFORMATION
  Report Type: Spontaneous
  Country: US (occurrence: US)
  Receive Date: 20140113
  Receipt Date: 20140116
  Transmission Date: 20141002
  Serious: Yes (Death, Hospitalization, Other)
  Sender: FDA-Public Use
  Company Number: US-009507513-1401USA003569

PATIENT
  Sex: Female
  Weight: 77.98 kg

DRUGS (6)
  1. JANUVIA [Suspect]
     Indication: TYPE 2 DIABETES MELLITUS
     Dosage: 100 MG, BID
     Route: 048
     Dates: start: 20110530, end: 20120202
  2. JANUVIA [Suspect]
     Dosage: 100 MG, QD
     Route: 048
  3. GLUCOTROL [Concomitant]
     Indication: TYPE 2 DIABETES MELLITUS
     Dosage: UNK
  4. LANTUS [Concomitant]
     Indication: TYPE 2 DIABETES MELLITUS
     Dosage: 32 IU, QD
  5. NOVOLOG [Concomitant]
     Indication: TYPE 2 DIABETES MELLITUS
     Dosage: UNK
  6. AZATHIOPRINE [Concomitant]
     Indication: AUTOIMMUNE HEPATITIS
     Dosage: UNK MG, QD

REACTIONS (11)
  - Pancreatic carcinoma metastatic [Fatal]
  - Gastrointestinal haemorrhage [Fatal]
  - Metastases to liver [Unknown]
  - Metastases to adrenals [Unknown]
  - Pancreatitis acute [Unknown]
  - Coronary artery disease [Unknown]
  - Appendicectomy [Unknown]
  - Tonsillectomy [Unknown]
  - Haematochezia [Unknown]
  - Breath sounds abnormal [Unknown]
  - Constipation [Recovered/Resolved]
